FAERS Safety Report 6306193-3 (Version None)
Quarter: 2009Q3

REPORT INFORMATION
  Report Type: 
  Country: None (occurrence: None)
  Receive Date: 20090812
  Receipt Date: 20090803
  Transmission Date: 20100115
  Serious: Yes (Hospitalization)
  Sender: FDA-Public Use
  Company Number: US-ROCHE-648087

PATIENT
  Age: 62 Year
  Sex: Female

DRUGS (8)
  1. BONIVA [Suspect]
     Indication: OSTEOPOROSIS
     Route: 065
     Dates: start: 20050401, end: 20090402
  2. BONIVA [Suspect]
     Route: 065
     Dates: start: 20090728
  3. OSCAL [Concomitant]
     Dosage: DRUG: OSCAL 500 PLUS B
  4. CHOLESTEROL [Concomitant]
     Dosage: FORM: PILL
  5. POTASSIUM CHLORIDE [Concomitant]
  6. VERAPAMIL [Concomitant]
  7. WATER PILL NOS [Concomitant]
  8. THYROID HORMONES [Concomitant]
     Dosage: THYROID MEDICATION

REACTIONS (4)
  - ARTHRALGIA [None]
  - BONE PAIN [None]
  - PAIN IN EXTREMITY [None]
  - SPINAL DECOMPRESSION [None]
